FAERS Safety Report 14159949 (Version 1)
Quarter: 2017Q4

REPORT INFORMATION
  Report Type: Report from Study
  Country: US (occurrence: US)
  Receive Date: 20171103
  Receipt Date: 20171103
  Transmission Date: 20180321
  Serious: No
  Sender: FDA-Public Use
  Company Number: US-AMGEN-USASL2017133021

PATIENT
  Age: 86 Year
  Sex: Male
  Weight: 74.6 kg

DRUGS (22)
  1. PROCRIT [Suspect]
     Active Substance: ERYTHROPOIETIN
     Indication: PRODUCT USED FOR UNKNOWN INDICATION
     Dosage: UNK
     Route: 065
  2. VITAMIN C [Concomitant]
     Active Substance: ASCORBIC ACID
     Dosage: 1 DF, QD
     Route: 048
  3. CARVEDILOL. [Concomitant]
     Active Substance: CARVEDILOL
     Dosage: 1 DF, BID
     Route: 048
  4. LEVOTHYROXINE SODIUM. [Concomitant]
     Active Substance: LEVOTHYROXINE SODIUM
     Dosage: 1 DF, QD
     Route: 048
  5. GLYBURIDE. [Concomitant]
     Active Substance: GLYBURIDE
     Dosage: 1 DF, QD
     Route: 048
  6. HYDRALAZINE HCL [Concomitant]
     Active Substance: HYDRALAZINE HYDROCHLORIDE
     Dosage: 1 DF, BID
     Route: 048
  7. VALSARTAN. [Concomitant]
     Active Substance: VALSARTAN
     Dosage: 1 DF, QD
     Route: 048
  8. DOXAZOSIN MESYLATE. [Concomitant]
     Active Substance: DOXAZOSIN MESYLATE
     Dosage: 1 DF, QD, QAM
     Route: 048
  9. JANUVIA [Concomitant]
     Active Substance: SITAGLIPTIN PHOSPHATE
     Dosage: 1 DF, QD
     Route: 048
  10. PROAIR HFA [Concomitant]
     Active Substance: ALBUTEROL SULFATE
     Dosage: TAKE 2 INHALATION(S) BY INHALATION Q4H PRN
  11. VITAMIN B12 [Concomitant]
     Active Substance: CYANOCOBALAMIN
     Dosage: 1 DF, QD
     Route: 048
  12. AZELASTINE HCL [Concomitant]
     Active Substance: AZELASTINE HYDROCHLORIDE
     Dosage: UNK
  13. NAMZARIC [Concomitant]
     Active Substance: DONEPEZIL HYDROCHLORIDE\MEMANTINE HYDROCHLORIDE
     Dosage: QD,  21 MG-10MG CAPSULE SPRINKLE, TAKE 21 DAILY
     Route: 048
  14. BREO ELLIPTA [Concomitant]
     Active Substance: FLUTICASONE FUROATE\VILANTEROL TRIFENATATE
     Dosage: UNK UNK, QD, 100-25MCG BLISTER, WITH INHALATION DEVICE
  15. MONTELUKAST SODIUM. [Concomitant]
     Active Substance: MONTELUKAST SODIUM
     Dosage: 1 DF, QHS
     Route: 048
  16. SIMVASTATIN. [Concomitant]
     Active Substance: SIMVASTATIN
     Dosage: 1 DF, QHS
     Route: 048
  17. ZOLOFT [Concomitant]
     Active Substance: SERTRALINE HYDROCHLORIDE
     Dosage: 1 DF, QHS
     Route: 048
  18. CLARITIN [Concomitant]
     Active Substance: LORATADINE
     Dosage: 1 DF, QD
     Route: 048
  19. CLOPIDOGREL [Concomitant]
     Active Substance: CLOPIDOGREL BISULFATE
     Dosage: 1 DF, QD
     Route: 048
  20. COENZYME Q10 [Concomitant]
     Active Substance: UBIDECARENONE
     Dosage: UNK
     Route: 048
  21. ISOSORBIDE DINITRATE. [Concomitant]
     Active Substance: ISOSORBIDE DINITRATE
     Dosage: 1 DF, QD
     Route: 060
  22. NIFEDIPINE. [Concomitant]
     Active Substance: NIFEDIPINE
     Dosage: 1 DF, BID
     Route: 048

REACTIONS (11)
  - Glomerular filtration rate decreased [Unknown]
  - Haemoglobin decreased [Unknown]
  - Blood urea increased [Unknown]
  - Blood creatinine increased [Unknown]
  - Red blood cell count decreased [Unknown]
  - Haematocrit decreased [Unknown]
  - Blood glucose increased [Unknown]
  - Mean platelet volume increased [Unknown]
  - Lymphocyte percentage decreased [Unknown]
  - Mean cell haemoglobin concentration decreased [Unknown]
  - Lymphocyte count decreased [Unknown]

NARRATIVE: CASE EVENT DATE: 20170822
